FAERS Safety Report 7636282-2 (Version None)
Quarter: 2011Q3

REPORT INFORMATION
  Report Type: 
  Country: None (occurrence: None)
  Receive Date: 20110726
  Receipt Date: 20110708
  Transmission Date: 20111222
  Serious: Yes (Hospitalization)
  Sender: FDA-Public Use
  Company Number: US-GLAXOSMITHKLINE-A0748254A

PATIENT
  Age: 66 Year
  Sex: Male
  Weight: 113.6 kg

DRUGS (2)
  1. AVANDIA [Suspect]
     Indication: DIABETES MELLITUS
     Dosage: 8MG PER DAY
     Route: 048
     Dates: start: 19990101, end: 20070101
  2. METFORMIN HCL [Concomitant]

REACTIONS (2)
  - HEART INJURY [None]
  - ARTERIAL OCCLUSIVE DISEASE [None]
